FAERS Safety Report 8780876 (Version 1)
Quarter: 2012Q4

REPORT INFORMATION
  Report Type: 
  Country: US (occurrence: US)
  Receive Date: 20120913
  Receipt Date: 20120913
  Transmission Date: 20130627
  Serious: Yes (Other)
  Sender: FDA-Public Use
  Company Number: US-009507513-1209USA003715

PATIENT

DRUGS (9)
  1. ISENTRESS [Suspect]
     Route: 048
  2. NORVIR [Suspect]
     Route: 048
  3. ETRAVIRINE [Suspect]
     Route: 048
  4. TRIZIVIR [Suspect]
  5. PREZISTA [Suspect]
     Route: 048
  6. TAHOR [Suspect]
     Route: 048
  7. CRESTOR [Suspect]
     Route: 048
  8. BACTRIM [Concomitant]
  9. CELIPROLOL HYDROCHLORIDE [Concomitant]

REACTIONS (1)
  - Blood creatine phosphokinase increased [Unknown]
